FAERS Safety Report 22004498 (Version 3)
Quarter: 2025Q3

REPORT INFORMATION
  Report Type: Report from Study
  Country: US (occurrence: US)
  Receive Date: 20230217
  Receipt Date: 20250829
  Transmission Date: 20251020
  Serious: Yes (Other)
  Sender: TAKEDA
  Company Number: US-TAKEDA-US201903068

PATIENT
  Age: 78 Year
  Sex: Female

DRUGS (2)
  1. HUMAN IMMUNOGLOBULIN G [Suspect]
     Active Substance: HUMAN IMMUNOGLOBULIN G
     Indication: Primary immunodeficiency syndrome
     Dosage: 8 GRAM, 1/WEEK
  2. HUMAN IMMUNOGLOBULIN G [Suspect]
     Active Substance: HUMAN IMMUNOGLOBULIN G
     Indication: Immunodeficiency common variable
     Dosage: 8 GRAM, 1/WEEK

REACTIONS (7)
  - Cataract [Unknown]
  - Respiratory tract infection viral [Recovered/Resolved]
  - Product storage error [Unknown]
  - Infusion site erythema [Unknown]
  - Hypersensitivity [Unknown]
  - Fall [Unknown]
  - Shoulder fracture [Unknown]

NARRATIVE: CASE EVENT DATE: 20250823
